FAERS Safety Report 15554028 (Version 7)
Quarter: 2025Q1

REPORT INFORMATION
  Report Type: Report from Study
  Country: JP (occurrence: JP)
  Receive Date: 20181026
  Receipt Date: 20250129
  Transmission Date: 20250408
  Serious: Yes (Other)
  Sender: BIOGEN
  Company Number: JP-BIOGEN-2018BI00527538

PATIENT
  Age: 2 Year
  Sex: Male
  Weight: 8.2 kg

DRUGS (26)
  1. SPINRAZA [Suspect]
     Active Substance: NUSINERSEN
     Indication: Spinal muscular atrophy
     Route: 050
     Dates: start: 20180131, end: 20180131
  2. SPINRAZA [Suspect]
     Active Substance: NUSINERSEN
     Route: 050
     Dates: start: 20180214, end: 20180214
  3. SPINRAZA [Suspect]
     Active Substance: NUSINERSEN
     Route: 050
     Dates: start: 20180228, end: 20180228
  4. SPINRAZA [Suspect]
     Active Substance: NUSINERSEN
     Route: 050
     Dates: start: 20180404, end: 20180404
  5. SPINRAZA [Suspect]
     Active Substance: NUSINERSEN
     Route: 050
     Dates: start: 20180808, end: 20180808
  6. SPINRAZA [Suspect]
     Active Substance: NUSINERSEN
     Route: 050
     Dates: start: 20181212, end: 20181212
  7. SPINRAZA [Suspect]
     Active Substance: NUSINERSEN
     Route: 050
     Dates: start: 20190424, end: 20190424
  8. SPINRAZA [Suspect]
     Active Substance: NUSINERSEN
     Route: 050
     Dates: start: 20191002
  9. SPINRAZA [Suspect]
     Active Substance: NUSINERSEN
     Route: 050
     Dates: start: 20191211
  10. SPINRAZA [Suspect]
     Active Substance: NUSINERSEN
     Route: 050
     Dates: start: 20200325, end: 20210804
  11. EPINASTINE [Concomitant]
     Active Substance: EPINASTINE
     Indication: Rhinitis allergic
     Route: 050
  12. HERBAL NOS [Concomitant]
     Active Substance: HERBALS
     Indication: Gastrointestinal hypomotility
     Route: 050
  13. SEVOFLURANE [Concomitant]
     Active Substance: SEVOFLURANE
     Indication: Anaesthesia procedure
     Route: 050
     Dates: start: 20180131, end: 20180131
  14. SEVOFLURANE [Concomitant]
     Active Substance: SEVOFLURANE
     Route: 050
     Dates: start: 20180214, end: 20180214
  15. SEVOFLURANE [Concomitant]
     Active Substance: SEVOFLURANE
     Route: 050
     Dates: start: 20180228, end: 20180228
  16. SEVOFLURANE [Concomitant]
     Active Substance: SEVOFLURANE
     Route: 050
     Dates: start: 20180404, end: 20180404
  17. SEVOFLURANE [Concomitant]
     Active Substance: SEVOFLURANE
     Route: 050
     Dates: start: 20180808, end: 20180808
  18. SEVOFLURANE [Concomitant]
     Active Substance: SEVOFLURANE
     Route: 050
     Dates: start: 20181212, end: 20181212
  19. SEVOFLURANE [Concomitant]
     Active Substance: SEVOFLURANE
     Route: 050
     Dates: start: 20190424, end: 20190424
  20. PROPOFOL [Concomitant]
     Active Substance: PROPOFOL
     Indication: Anaesthesia procedure
     Route: 050
     Dates: start: 20180131, end: 20180131
  21. PROPOFOL [Concomitant]
     Active Substance: PROPOFOL
     Route: 050
     Dates: start: 20180214, end: 20180214
  22. PROPOFOL [Concomitant]
     Active Substance: PROPOFOL
     Route: 050
     Dates: start: 20180228, end: 20180228
  23. PROPOFOL [Concomitant]
     Active Substance: PROPOFOL
     Route: 050
     Dates: start: 20180404, end: 20180404
  24. PROPOFOL [Concomitant]
     Active Substance: PROPOFOL
     Route: 050
     Dates: start: 20180808, end: 20180808
  25. PROPOFOL [Concomitant]
     Active Substance: PROPOFOL
     Route: 050
     Dates: start: 20181212, end: 20181212
  26. PROPOFOL [Concomitant]
     Active Substance: PROPOFOL
     Route: 050
     Dates: start: 20190424, end: 20190424

REACTIONS (6)
  - Upper gastrointestinal haemorrhage [Recovered/Resolved]
  - Increased upper airway secretion [Recovered/Resolved]
  - Somnolence [Recovered/Resolved]
  - Hepatic function abnormal [Recovered/Resolved]
  - Inappropriate schedule of product administration [Unknown]
  - Inappropriate schedule of product administration [Unknown]

NARRATIVE: CASE EVENT DATE: 20180131
